FAERS Safety Report 5911798-5 (Version None)
Quarter: 2008Q4

REPORT INFORMATION
  Report Type: 
  Country: None (occurrence: None)
  Receive Date: 20081008
  Receipt Date: 20080929
  Transmission Date: 20090506
  Serious: Yes (Other)
  Sender: FDA-Public Use
  Company Number: BR-BAYER-200818711LA

PATIENT
  Age: 25 Year
  Sex: Female

DRUGS (2)
  1. BETAFERON [Suspect]
     Indication: MULTIPLE SCLEROSIS
     Route: 058
     Dates: start: 20080918, end: 20080918
  2. BETAFERON [Suspect]
     Route: 058
     Dates: start: 20080924

REACTIONS (3)
  - CONVULSION [None]
  - INJECTION SITE RASH [None]
  - PRESYNCOPE [None]
